FAERS Safety Report 4682889-4 (Version None)
Quarter: 2005Q2

REPORT INFORMATION
  Report Type: 
  Country: None (occurrence: None)
  Receive Date: 20050531
  Receipt Date: 20050128
  Transmission Date: 20051028
  Serious: Yes (Hospitalization)
  Sender: FDA-Public Use
  Company Number: 200419005US

PATIENT
  Age: 77 Year
  Sex: Male
  Weight: 58.2 kg

DRUGS (8)
  1. LOVENOX [Suspect]
     Indication: CORONARY ARTERY SURGERY
     Dosage: 70 MG BID SC
     Route: 058
     Dates: start: 20041008, end: 20041024
  2. LOVENOX [Suspect]
     Indication: CORONARY ARTERY SURGERY
     Dosage: 70 MG BID SC
     Route: 058
     Dates: start: 20041008, end: 20041024
  3. LOVENOX [Suspect]
     Indication: CORONARY ARTERY SURGERY
     Dosage: 70 MG BID SC
     Route: 058
     Dates: start: 20041008, end: 20041024
  4. LOVENOX [Suspect]
     Indication: CORONARY ARTERY SURGERY
     Dosage: 70 MG BID SC
     Route: 058
     Dates: start: 20041008, end: 20041024
  5. ZOLOFT [Concomitant]
  6. LANSOPRAZOLE [Concomitant]
  7. METOPROLOL [Concomitant]
  8. MORPHINE [Concomitant]

REACTIONS (6)
  - BEDRIDDEN [None]
  - FEEDING DISORDER [None]
  - HAEMATOMA [None]
  - HAEMORRHAGE [None]
  - MYOCARDIAL INFARCTION [None]
  - NAUSEA [None]
